FAERS Safety Report 19628511 (Version 4)
Quarter: 2022Q2

REPORT INFORMATION
  Report Type: Spontaneous
  Country: GB (occurrence: GB)
  Receive Date: 20210728
  Receipt Date: 20220412
  Transmission Date: 20220720
  Serious: Yes (Other)
  Sender: FDA-Public Use
  Company Number: None

PATIENT
  Age: 52 Year
  Sex: Female
  Weight: 53 kg

DRUGS (4)
  1. AMLODIPINE [Suspect]
     Active Substance: AMLODIPINE BESYLATE
     Indication: Hypertension
     Dosage: 5 MILLIGRAM (START 01-DEC-2020)
     Route: 048
     Dates: end: 20210501
  2. CANDESARTAN [Suspect]
     Active Substance: CANDESARTAN
     Indication: Hypertension
     Dosage: 5 MILLIGRAM (START 01-APR-2021)
     Route: 048
     Dates: end: 20210601
  3. CANDESARTAN [Suspect]
     Active Substance: CANDESARTAN
     Dosage: UNK (START 01-APR-2021)
     Route: 048
     Dates: end: 20210601
  4. RAMIPRIL [Suspect]
     Active Substance: RAMIPRIL
     Indication: Hypertension
     Dosage: 5 MILLIGRAM
     Route: 048
     Dates: start: 20201109, end: 20210301

REACTIONS (2)
  - Paranasal sinus inflammation [Not Recovered/Not Resolved]
  - Head discomfort [Not Recovered/Not Resolved]

NARRATIVE: CASE EVENT DATE: 20201110
